FAERS Safety Report 12061650 (Version 2)
Quarter: 2016Q1

REPORT INFORMATION
  Report Type: Report from Study
  Country: DE (occurrence: DE)
  Receive Date: 20160210
  Receipt Date: 20160212
  Transmission Date: 20160526
  Serious: Yes (Hospitalization)
  Sender: FDA-Public Use
  Company Number: PHHY2013DE078484

PATIENT

DRUGS (1)
  1. ILARIS [Suspect]
     Active Substance: CANAKINUMAB
     Indication: CRYOPYRIN ASSOCIATED PERIODIC SYNDROME
     Dosage: UNK
     Route: 058
     Dates: start: 20120501

REACTIONS (9)
  - Abdominal pain upper [Unknown]
  - Decreased appetite [Recovered/Resolved]
  - Abscess [Recovered/Resolved]
  - Lacrimation increased [Recovered/Resolved]
  - Lymphadenopathy [Recovered/Resolved]
  - Agitation [Recovered/Resolved]
  - Skin lesion [Recovered/Resolved]
  - Abdominal pain upper [Recovered/Resolved]
  - Vomiting [Recovered/Resolved]

NARRATIVE: CASE EVENT DATE: 20120501
